FAERS Safety Report 22201656 (Version 1)
Quarter: 2023Q2

REPORT INFORMATION
  Report Type: Spontaneous
  Country: US (occurrence: None)
  Receive Date: 20230411
  Receipt Date: 20230411
  Transmission Date: 20230722
  Serious: No
  Sender: FDA-Public Use
  Company Number: None

PATIENT
  Sex: Female
  Weight: 58.97 kg

DRUGS (8)
  1. PROMACTA [Suspect]
     Active Substance: ELTROMBOPAG OLAMINE
     Indication: Myelodysplastic syndrome
     Dosage: FREQUENCY : DAILY;?
     Route: 048
     Dates: start: 202107
  2. ACETAMINOPHEN [Concomitant]
  3. COLLAGEN [Concomitant]
     Active Substance: COLLAGEN
  4. CULTURELLE [Concomitant]
     Active Substance: LACTOBACILLUS RHAMNOSUS
  5. KLONOPIN [Concomitant]
     Active Substance: CLONAZEPAM
  6. MILK OF MAGNESIA [Concomitant]
     Active Substance: MAGNESIUM HYDROXIDE
  7. Olanzepine [Concomitant]
  8. ZOLOFT [Concomitant]
     Active Substance: SERTRALINE HYDROCHLORIDE

REACTIONS (2)
  - Acute myeloid leukaemia [None]
  - Therapy cessation [None]
